FAERS Safety Report 24034544 (Version 1)
Quarter: 2024Q3

REPORT INFORMATION
  Report Type: Spontaneous
  Country: US (occurrence: US)
  Receive Date: 20240701
  Receipt Date: 20240701
  Transmission Date: 20241016
  Serious: No
  Sender: Haleon PLC
  Company Number: US-HALEON-2168053

PATIENT
  Sex: Male

DRUGS (1)
  1. NICODERM CQ [Suspect]
     Active Substance: NICOTINE
     Dosage: EXPDATE:20230831
     Dates: start: 20240401, end: 20240408

REACTIONS (2)
  - Drug ineffective [Unknown]
  - Expired product administered [Unknown]
